FAERS Safety Report 22048390 (Version 6)
Quarter: 2024Q1

REPORT INFORMATION
  Report Type: Report from Study
  Country: US (occurrence: US)
  Receive Date: 20230301
  Receipt Date: 20240222
  Transmission Date: 20240410
  Serious: Yes (Other)
  Sender: FDA-Public Use
  Company Number: US-002147023-NVSC2023US040935

PATIENT
  Age: 22 Year
  Sex: Female
  Weight: 106.6 kg

DRUGS (3)
  1. KESIMPTA [Suspect]
     Active Substance: OFATUMUMAB
     Indication: Multiple sclerosis
     Dosage: 1 DOSAGE FORM, QMO
     Route: 058
     Dates: start: 20220530
  2. WELLBUTRIN [Concomitant]
     Active Substance: BUPROPION HYDROCHLORIDE
     Indication: Depression
     Dosage: UNK
     Route: 048
     Dates: start: 20220429
  3. VITAMIN D3 [Concomitant]
     Active Substance: CHOLECALCIFEROL
     Indication: Multiple sclerosis
     Dosage: UNK UNK, QD
     Route: 048

REACTIONS (8)
  - Multiple sclerosis relapse [Unknown]
  - Nasopharyngitis [Recovered/Resolved]
  - Nasal congestion [Recovered/Resolved]
  - Headache [Recovered/Resolved]
  - Oropharyngeal pain [Recovered/Resolved]
  - Pain [Recovered/Resolved]
  - Coronavirus test positive [Recovered/Resolved]
  - Limb discomfort [Unknown]

NARRATIVE: CASE EVENT DATE: 20230220
